FAERS Safety Report 7130697-7 (Version None)
Quarter: 2010Q4

REPORT INFORMATION
  Report Type: 
  Country: None (occurrence: None)
  Receive Date: 20101201
  Receipt Date: 20101123
  Transmission Date: 20110411
  Serious: Yes (Disabling, Other)
  Sender: FDA-Public Use
  Company Number: BR-SANOFI-AVENTIS-2010SA071554

PATIENT
  Age: 64 Year
  Sex: Female
  Weight: 115 kg

DRUGS (5)
  1. LANTUS [Suspect]
     Dosage: 20 IU IN AM AND 20 IU AT NIGHT
     Route: 058
     Dates: start: 20040101
  2. NOVORAPID [Concomitant]
     Dosage: 3 INJECTIONS OF 15 IU DAILY
  3. OLMETEC [Concomitant]
     Route: 048
  4. ATENOLOL [Concomitant]
     Route: 048
  5. ASPIRIN [Concomitant]
     Indication: PROPHYLAXIS
     Route: 048

REACTIONS (6)
  - ABDOMINAL PAIN [None]
  - BLINDNESS [None]
  - EYE HAEMORRHAGE [None]
  - HYPERGLYCAEMIA [None]
  - MUSCULAR WEAKNESS [None]
  - RETCHING [None]
